FAERS Safety Report 6828534-0 (Version None)
Quarter: 2010Q3

REPORT INFORMATION
  Report Type: 
  Country: None (occurrence: None)
  Receive Date: 20100708
  Receipt Date: 20100708
  Transmission Date: 20110219
  Serious: Yes (Hospitalization, Other)
  Sender: FDA-Public Use
  Company Number: None

PATIENT
  Age: 47 Year
  Sex: Female
  Weight: 90.7194 kg

DRUGS (3)
  1. YAZ [Suspect]
     Indication: AFFECTIVE DISORDER
     Dosage: ONE TABLET DAILY PO
     Route: 048
  2. YASMIN [Suspect]
     Indication: CONTRACEPTION
     Dosage: ONE TABLET DAILY PO
     Route: 048
  3. YASMIN [Suspect]
     Indication: MENSTRUATION IRREGULAR
     Dosage: ONE TABLET DAILY PO
     Route: 048

REACTIONS (3)
  - CHOLECYSTECTOMY [None]
  - PAIN [None]
  - PALPITATIONS [None]
